FAERS Safety Report 7791926-X (Version None)
Quarter: 2011Q4

REPORT INFORMATION
  Report Type: 
  Country: None (occurrence: None)
  Receive Date: 20111003
  Receipt Date: 20110927
  Transmission Date: 20120403
  Serious: Yes (Hospitalization)
  Sender: FDA-Public Use
  Company Number: FR-PFIZER INC-2011229268

PATIENT
  Age: 9 Year
  Sex: Female
  Weight: 30.8 kg

DRUGS (4)
  1. ACETAMINOPHEN [Concomitant]
     Indication: HEADACHE
  2. IBUPROFEN (ADVIL) [Suspect]
     Indication: PYREXIA
     Dosage: 200 MG
     Route: 048
     Dates: start: 20070126, end: 20070126
  3. ACETAMINOPHEN [Concomitant]
     Indication: PYREXIA
     Dosage: UNK
     Dates: start: 20070126
  4. ACETAMINOPHEN [Concomitant]
     Indication: VOMITING

REACTIONS (3)
  - PHARYNGITIS [None]
  - RHINORRHOEA [None]
  - EYELID OEDEMA [None]
